FAERS Safety Report 9240029 (Version 1)
Quarter: 2013Q2

REPORT INFORMATION
  Report Type: Spontaneous
  Country: US (occurrence: None)
  Receive Date: 20130417
  Receipt Date: 20130417
  Transmission Date: 20140414
  Serious: Yes (Death)
  Sender: FDA-Public Use
  Company Number: 2013-US-0129

PATIENT
  Age: 61 Year
  Sex: Male
  Weight: 60.33 kg

DRUGS (3)
  1. ABSTRAL [Suspect]
     Indication: PAIN
     Dosage: 100 MCG EVERY 2 HOURS SUBLINGUAL
     Route: 060
     Dates: start: 20120329
  2. DILAUDID (HYDROMORPHONE HYDROCHLORIDE) INJECTION [Concomitant]
  3. FENTANYL [Concomitant]

REACTIONS (1)
  - Death [None]
